FAERS Safety Report 17057204 (Version 1)
Quarter: 2019Q4

REPORT INFORMATION
  Report Type: Spontaneous
  Country: IT (occurrence: IT)
  Receive Date: 20191121
  Receipt Date: 20191121
  Transmission Date: 20200122
  Serious: Yes (Other)
  Sender: FDA-Public Use
  Company Number: IT-ACCORD-161713

PATIENT
  Age: 18 Year
  Sex: Male

DRUGS (5)
  1. FOLINA [Concomitant]
  2. CARDIRENE [Concomitant]
     Active Substance: ASPIRIN DL-LYSINE
  3. METHOTREXATE. [Suspect]
     Active Substance: METHOTREXATE
     Indication: STILL^S DISEASE
     Route: 030
     Dates: start: 20190517, end: 20190927
  4. COLECALCIFEROL [Concomitant]
     Active Substance: CHOLECALCIFEROL
  5. ANTRA [Concomitant]
     Active Substance: OMEPRAZOLE

REACTIONS (1)
  - Pharyngitis bacterial [Recovered/Resolved]

NARRATIVE: CASE EVENT DATE: 20190927
